FAERS Safety Report 6866093-7 (Version None)
Quarter: 2010Q3

REPORT INFORMATION
  Report Type: 
  Country: None (occurrence: None)
  Receive Date: 20100722
  Receipt Date: 20100716
  Transmission Date: 20110219
  Serious: Yes (Other)
  Sender: FDA-Public Use
  Company Number: SG-B.I. PHARMACEUTICALS,INC./RIDGEFIELD-2010-CS-00651MD

PATIENT
  Sex: Female

DRUGS (5)
  1. MICARDIS [Suspect]
     Dosage: 40 MG
     Route: 048
     Dates: start: 20030701
  2. GLUCOPHAGE [Concomitant]
     Dosage: 1700 MG
     Route: 048
     Dates: start: 20031001
  3. LOVASTATIN [Concomitant]
     Dosage: 20 MG
     Route: 048
     Dates: start: 20031001
  4. ATENOLOL [Concomitant]
     Route: 048
     Dates: start: 19910101
  5. ASPIRIN [Concomitant]
     Dosage: 100 MG
     Route: 048
     Dates: start: 20031001

REACTIONS (1)
  - THYROID CANCER [None]
